FAERS Safety Report 12679821 (Version 5)
Quarter: 2019Q4

REPORT INFORMATION
  Report Type: Report from Study
  Country: US (occurrence: US)
  Receive Date: 20160824
  Receipt Date: 20191202
  Transmission Date: 20200122
  Serious: Yes (Other)
  Sender: FDA-Public Use
  Company Number: US-ARIAD PHARMACEUTICALS, INC-2016US006165

PATIENT
  Sex: Male
  Weight: 106 kg

DRUGS (10)
  1. PONATINIB [Suspect]
     Active Substance: PONATINIB
     Dosage: 45 MILLIGRAM, QD
     Route: 048
  2. PANTOPRAZOLE SODIUM. [Concomitant]
     Active Substance: PANTOPRAZOLE SODIUM
     Dosage: UNK
  3. PONATINIB [Suspect]
     Active Substance: PONATINIB
     Indication: CHRONIC MYELOID LEUKAEMIA
     Dosage: 45 MILLIGRAM, QD
     Route: 048
     Dates: start: 201512
  4. PONATINIB [Suspect]
     Active Substance: PONATINIB
     Dosage: 90 MILLIGRAM, QD
     Route: 048
  5. HYDREA [Concomitant]
     Active Substance: HYDROXYUREA
     Dosage: UNK
  6. PONATINIB [Suspect]
     Active Substance: PONATINIB
     Dosage: 45 MILLIGRAM, QD
     Route: 048
  7. PONATINIB [Suspect]
     Active Substance: PONATINIB
     Dosage: 45 MILLIGRAM, QD
     Route: 048
  8. PONATINIB [Suspect]
     Active Substance: PONATINIB
     Dosage: 45 MILLIGRAM, QD
     Route: 048
  9. ASPIRIN (E.C.) [Concomitant]
     Active Substance: ASPIRIN
     Dosage: UNK
  10. ALBUTEROL                          /00139501/ [Concomitant]
     Active Substance: ALBUTEROL
     Dosage: UNK

REACTIONS (17)
  - Contusion [Unknown]
  - Fatigue [Unknown]
  - Insomnia [Unknown]
  - Hyperhidrosis [Unknown]
  - Musculoskeletal discomfort [Unknown]
  - Skin irritation [Unknown]
  - Nasopharyngitis [Unknown]
  - Respiratory tract infection [Unknown]
  - Scratch [Unknown]
  - Infection [Unknown]
  - Folliculitis [Unknown]
  - Thermal burn [Unknown]
  - Ear haemorrhage [Unknown]
  - White blood cell count increased [Not Recovered/Not Resolved]
  - Overdose [Unknown]
  - Depression [Unknown]
  - Transplant [Unknown]
